FAERS Safety Report 20109429 (Version 1)
Quarter: 2021Q4

REPORT INFORMATION
  Report Type: Report from Study
  Country: BG (occurrence: BG)
  Receive Date: 20211124
  Receipt Date: 20211124
  Transmission Date: 20220303
  Serious: Yes (Death, Hospitalization, Other)
  Sender: FDA-Public Use
  Company Number: BG-NOVARTISPH-NVSC2021BG263686

PATIENT
  Age: 61 Year
  Sex: Male
  Weight: 75 kg

DRUGS (1)
  1. COSENTYX [Suspect]
     Active Substance: SECUKINUMAB
     Indication: Ankylosing spondylitis
     Dosage: 150 MG, QMO (EVERY 4 WEEKS)
     Route: 058
     Dates: start: 201712, end: 202109

REACTIONS (6)
  - COVID-19 pneumonia [Fatal]
  - Pyrexia [Fatal]
  - Cough [Fatal]
  - Fatigue [Fatal]
  - Cardiac arrest [Fatal]
  - Respiratory failure [Unknown]

NARRATIVE: CASE EVENT DATE: 20211013
